FAERS Safety Report 20068019 (Version 2)
Quarter: 2022Q1

REPORT INFORMATION
  Report Type: Spontaneous
  Country: US (occurrence: None)
  Receive Date: 20211115
  Receipt Date: 20220101
  Transmission Date: 20220423
  Serious: No
  Sender: FDA-Public Use
  Company Number: 2021A781859

PATIENT
  Age: 72 Year
  Sex: Female
  Weight: 76.7 kg

DRUGS (1)
  1. PULMICORT FLEXHALER [Suspect]
     Active Substance: BUDESONIDE
     Indication: Asthma
     Route: 055
     Dates: start: 20210920

REACTIONS (4)
  - Dyspnoea [Not Recovered/Not Resolved]
  - Product use issue [Unknown]
  - Device delivery system issue [Unknown]
  - Device malfunction [Unknown]

NARRATIVE: CASE EVENT DATE: 20210101
